FAERS Safety Report 25283412 (Version 1)
Quarter: 2025Q2

REPORT INFORMATION
  Report Type: Spontaneous
  Country: ES (occurrence: ES)
  Receive Date: 20250508
  Receipt Date: 20250508
  Transmission Date: 20250717
  Serious: Yes (Other)
  Sender: FRESENIUS KABI
  Company Number: None

PATIENT
  Age: 37 Year
  Sex: Male
  Weight: 70 kg

DRUGS (3)
  1. IDACIO [Suspect]
     Active Substance: ADALIMUMAB-AACF
     Indication: Psoriasis
     Route: 058
     Dates: start: 20231129
  2. IDACIO [Suspect]
     Active Substance: ADALIMUMAB-AACF
     Route: 058
     Dates: start: 20231129
  3. IDACIO [Suspect]
     Active Substance: ADALIMUMAB-AACF
     Route: 058
     Dates: start: 20231129

REACTIONS (1)
  - Enteritis [Recovered/Resolved]

NARRATIVE: CASE EVENT DATE: 20240920
